FAERS Safety Report 5879929-3 (Version None)
Quarter: 2008Q3

REPORT INFORMATION
  Report Type: 
  Country: None (occurrence: None)
  Receive Date: 20080912
  Receipt Date: 20080902
  Transmission Date: 20090109
  Serious: Yes (Other)
  Sender: FDA-Public Use
  Company Number: US-PFIZER INC-2005061235

PATIENT
  Sex: Male
  Weight: 86.2 kg

DRUGS (2)
  1. NEURONTIN [Suspect]
     Indication: NEUROPATHY PERIPHERAL
     Route: 048
     Dates: start: 20050601
  2. DARVOCET [Concomitant]

REACTIONS (8)
  - CYST [None]
  - DIABETES MELLITUS [None]
  - DRUG EFFECT DECREASED [None]
  - EXOSTOSIS [None]
  - FALL [None]
  - JOINT INJURY [None]
  - PAIN [None]
  - POLYP [None]
